FAERS Safety Report 4714485-4 (Version None)
Quarter: 2005Q3

REPORT INFORMATION
  Report Type: 
  Country: None (occurrence: None)
  Receive Date: 20050714
  Receipt Date: 20050621
  Transmission Date: 20060218
  Serious: Yes (Hospitalization)
  Sender: FDA-Public Use
  Company Number: 200511833JP

PATIENT
  Age: 63 Year
  Sex: Female

DRUGS (5)
  1. AMARYL [Suspect]
     Indication: DIABETES MELLITUS NON-INSULIN-DEPENDENT
     Route: 048
  2. NORVASC [Concomitant]
  3. LASIX [Concomitant]
  4. TANATRIL [Concomitant]
  5. CARDENALIN [Concomitant]

REACTIONS (1)
  - OEDEMA [None]
